FAERS Safety Report 6458750-1 (Version None)
Quarter: 2009Q4

REPORT INFORMATION
  Report Type: 
  Country: None (occurrence: None)
  Receive Date: 20091127
  Receipt Date: 20091116
  Transmission Date: 20100525
  Serious: Yes (Other)
  Sender: FDA-Public Use
  Company Number: GB-ROCHE-669990

PATIENT
  Age: 16 Year
  Sex: Female

DRUGS (2)
  1. LARIAM [Suspect]
     Indication: MALARIA PROPHYLAXIS
     Route: 065
     Dates: start: 19940101
  2. VACCINES NOS [Concomitant]
     Indication: FOREIGN TRAVEL

REACTIONS (2)
  - NARCOLEPSY [None]
  - SOMNOLENCE [None]
